FAERS Safety Report 12448763 (Version 2)
Quarter: 2016Q2

REPORT INFORMATION
  Report Type: Spontaneous
  Country: FR (occurrence: FR)
  Receive Date: 20160608
  Receipt Date: 20160614
  Transmission Date: 20160815
  Serious: Yes (Hospitalization, Other)
  Sender: FDA-Public Use
  Company Number: FR-JNJFOC-20160604823

PATIENT
  Age: 62 Year
  Sex: Male

DRUGS (8)
  1. KARDEGIC [Concomitant]
     Active Substance: ASPIRIN LYSINE
     Route: 065
  2. FLUCONAZOLE. [Suspect]
     Active Substance: FLUCONAZOLE
     Indication: OSTEOMYELITIS
     Route: 065
  3. AMIODARONE [Concomitant]
     Active Substance: AMIODARONE
     Route: 065
  4. TAHOR [Concomitant]
     Active Substance: ATORVASTATIN CALCIUM
     Route: 065
  5. XARELTO [Suspect]
     Active Substance: RIVAROXABAN
     Indication: CEREBROVASCULAR ACCIDENT PROPHYLAXIS
     Route: 048
     Dates: start: 201508, end: 20160513
  6. XARELTO [Suspect]
     Active Substance: RIVAROXABAN
     Indication: ATRIAL FIBRILLATION
     Route: 048
     Dates: start: 201508, end: 20160513
  7. FLUCONAZOLE. [Suspect]
     Active Substance: FLUCONAZOLE
     Indication: CANDIDA INFECTION
     Route: 065
  8. CARDENSIEL [Concomitant]
     Active Substance: BISOPROLOL FUMARATE
     Route: 065

REACTIONS (4)
  - Incision site haemorrhage [Recovered/Resolved]
  - Overdose [Unknown]
  - Procedural haemorrhage [Recovered/Resolved]
  - Hip arthroplasty [Unknown]

NARRATIVE: CASE EVENT DATE: 20160414
